FAERS Safety Report 5411812-X (Version None)
Quarter: 2007Q3

REPORT INFORMATION
  Report Type: 
  Country: None (occurrence: None)
  Receive Date: 20070813
  Receipt Date: 20070801
  Transmission Date: 20080115
  Serious: Yes (Life-Threatening, Hospitalization)
  Sender: FDA-Public Use
  Company Number: JP-JNJFOC-20070704731

PATIENT
  Age: 78 Year
  Sex: Female
  Weight: 33 kg

DRUGS (6)
  1. REMICADE [Suspect]
     Route: 042
  2. REMICADE [Suspect]
     Route: 042
  3. REMICADE [Suspect]
     Indication: RHEUMATOID ARTHRITIS
     Route: 042
  4. PREDONINE [Suspect]
     Indication: DRUG USE FOR UNKNOWN INDICATION
  5. AZULFIDINE EN-TABS [Suspect]
     Indication: DRUG USE FOR UNKNOWN INDICATION
     Route: 048
  6. RHEUMATREX [Suspect]
     Indication: RHEUMATOID ARTHRITIS
     Route: 048

REACTIONS (1)
  - PNEUMOCYSTIS JIROVECI PNEUMONIA [None]
